FAERS Safety Report 6750106-7 (Version None)
Quarter: 2010Q2

REPORT INFORMATION
  Report Type: 
  Country: None (occurrence: None)
  Receive Date: 20100601
  Receipt Date: 20100524
  Transmission Date: 20101027
  Serious: Yes (Life-Threatening, Hospitalization, Other)
  Sender: FDA-Public Use
  Company Number: US-KINGPHARMUSA00001-K201000643

PATIENT
  Age: 60 Year
  Sex: Male

DRUGS (7)
  1. EMBEDA [Suspect]
     Indication: PAIN
     Dosage: 720 MG, SINGLE
     Dates: start: 20100515
  2. LORTAB [Concomitant]
     Dosage: UNK
  3. HYDROMORPHONE HCL [Concomitant]
     Dosage: UNK
  4. DIAZEPAM [Concomitant]
     Dosage: UNK
  5. SOMA COMPOUND W/ CODEINE [Concomitant]
     Dosage: UNK
  6. AMBIEN [Concomitant]
     Dosage: UNK
  7. PREGABALIN [Concomitant]

REACTIONS (9)
  - APNOEA [None]
  - CARDIO-RESPIRATORY ARREST [None]
  - COMA [None]
  - CONVULSION [None]
  - ELECTROENCEPHALOGRAM ABNORMAL [None]
  - INTENTIONAL OVERDOSE [None]
  - SLUGGISHNESS [None]
  - SUICIDE ATTEMPT [None]
  - UNRESPONSIVE TO STIMULI [None]
